FAERS Safety Report 11423868 (Version 1)
Quarter: 2015Q3

REPORT INFORMATION
  Report Type: Spontaneous
  Country: US (occurrence: US)
  Receive Date: 20150827
  Receipt Date: 20150827
  Transmission Date: 20151125
  Serious: No
  Sender: FDA-Public Use
  Company Number: US-JNJFOC-20141216927

PATIENT
  Age: 15 Month
  Sex: Male
  Weight: 9.07 kg

DRUGS (2)
  1. MOTRIN [Suspect]
     Active Substance: IBUPROFEN
     Route: 048
  2. MOTRIN [Suspect]
     Active Substance: IBUPROFEN
     Indication: PYREXIA
     Route: 048
     Dates: start: 20141211, end: 20141214

REACTIONS (5)
  - Eye swelling [Recovered/Resolved]
  - Swelling face [Recovered/Resolved]
  - Oral pruritus [Recovered/Resolved]
  - Nasal oedema [Recovered/Resolved]
  - Urticaria [Recovered/Resolved]

NARRATIVE: CASE EVENT DATE: 20141212
